FAERS Safety Report 6191271-2 (Version None)
Quarter: 2009Q2

REPORT INFORMATION
  Report Type: 
  Country: None (occurrence: None)
  Receive Date: 20090513
  Receipt Date: 20090513
  Transmission Date: 20091009
  Serious: Yes (Other)
  Sender: FDA-Public Use
  Company Number: None

PATIENT
  Age: 78 Year
  Sex: Female
  Weight: 63.5036 kg

DRUGS (1)
  1. RECLAST [Suspect]
     Dosage: ONCE PR YEAR

REACTIONS (3)
  - CONDITION AGGRAVATED [None]
  - GOUTY ARTHRITIS [None]
  - OSTEOARTHRITIS [None]
